FAERS Safety Report 25074972 (Version 1)
Quarter: 2025Q1

REPORT INFORMATION
  Report Type: Spontaneous
  Country: US (occurrence: US)
  Receive Date: 20250313
  Receipt Date: 20250313
  Transmission Date: 20250409
  Serious: Yes (Life-Threatening, Hospitalization, Other)
  Sender: UNITED THERAPEUTICS
  Company Number: US-UNITED THERAPEUTICS-UNT-2025-008179

PATIENT
  Age: 53 Year
  Sex: Male

DRUGS (8)
  1. REMODULIN [Suspect]
     Active Substance: TREPROSTINIL
     Indication: Portopulmonary hypertension
  2. TADALAFIL [Concomitant]
     Active Substance: TADALAFIL
     Indication: Portopulmonary hypertension
  3. NITRIC OXIDE [Concomitant]
     Active Substance: NITRIC OXIDE
     Indication: Product used for unknown indication
  4. NOREPINEPHRINE [Concomitant]
     Active Substance: NOREPINEPHRINE
     Indication: Product used for unknown indication
  5. VASOPRESSIN [Concomitant]
     Active Substance: VASOPRESSIN
     Indication: Product used for unknown indication
  6. EPINEPHRINE [Concomitant]
     Active Substance: EPINEPHRINE
     Indication: Product used for unknown indication
  7. HEPARIN [Concomitant]
     Active Substance: HEPARIN SODIUM
     Indication: Cardiac ventricular thrombosis
     Route: 041
  8. HYDROXOCOBALAMIN [Concomitant]
     Active Substance: HYDROXOCOBALAMIN
     Indication: Vasoplegia syndrome

REACTIONS (7)
  - Right ventricular failure [Recovered/Resolved]
  - Hypervolaemia [Recovered/Resolved]
  - Mental status changes [Recovered/Resolved]
  - Cardiac ventricular thrombosis [Recovered/Resolved]
  - Vasoplegia syndrome [Recovered/Resolved]
  - Acidosis [Recovered/Resolved]
  - Pulmonary arterial pressure increased [Recovered/Resolved]
